FAERS Safety Report 19439486 (Version 1)
Quarter: 2021Q2

REPORT INFORMATION
  Report Type: Other
  Country: GB (occurrence: GB)
  Receive Date: 20210618
  Receipt Date: 20210618
  Transmission Date: 20210717
  Serious: Yes (Other)
  Sender: FDA-Public Use
  Company Number: GB-CELLTRION INC.-2021GB008091

PATIENT

DRUGS (21)
  1. TRASTUZUMAB (UNKNOWN) [Suspect]
     Active Substance: TRASTUZUMAB
     Dosage: 483 MG/KG
     Route: 041
     Dates: start: 20170228
  2. PERTUZUMAB. [Suspect]
     Active Substance: PERTUZUMAB
     Dosage: 420 MG/KG EVERY 3 WEEKS
     Route: 042
     Dates: start: 20170412, end: 20180112
  3. CAPECITABINE. [Suspect]
     Active Substance: CAPECITABINE
     Indication: BREAST CANCER
     Dosage: 4000 MILLIGRAM, QD
     Route: 048
     Dates: start: 20200721
  4. PERTUZUMAB. [Suspect]
     Active Substance: PERTUZUMAB
     Indication: BREAST CANCER
     Dosage: 420 MG/KG EVERY 3 WEEKS
     Route: 042
     Dates: start: 20170412
  5. PERTUZUMAB. [Suspect]
     Active Substance: PERTUZUMAB
     Dosage: 420 MG/KG EVERY 3 WEEKS
     Route: 042
     Dates: start: 20170412, end: 20180112
  6. DIFFLAM [Concomitant]
     Indication: MOUTH ULCERATION
     Dosage: 15 ML, PRN
     Route: 048
  7. TRASTUZUMAB (UNKNOWN) [Suspect]
     Active Substance: TRASTUZUMAB
     Dosage: 514.5 MG EVERY 3 WEEKS
     Route: 041
     Dates: start: 20170412, end: 20170412
  8. DOCETAXEL. [Suspect]
     Active Substance: DOCETAXEL
     Dosage: 148 MG EVERY 3 WEEKS
     Route: 042
     Dates: start: 20170412, end: 20170614
  9. DOCETAXEL. [Suspect]
     Active Substance: DOCETAXEL
     Dosage: 148 MG EVERY 3 WEEKS
     Route: 042
     Dates: start: 20170412
  10. DOCETAXEL. [Suspect]
     Active Substance: DOCETAXEL
     Indication: BREAST CANCER
     Dosage: 148 MG EVERY 3 WEEKS
     Route: 042
     Dates: start: 20170412, end: 20170614
  11. EPIRUBICIN [Suspect]
     Active Substance: EPIRUBICIN
     Dosage: 140 MILLIGRAM EVERY 3 WEEKS
     Route: 042
     Dates: start: 20180525, end: 20180615
  12. EPIRUBICIN [Suspect]
     Active Substance: EPIRUBICIN
     Dosage: 180 MILLIGRAM EVERY 3 WEEKS
     Route: 042
     Dates: start: 20180223, end: 20180427
  13. SENNA [Concomitant]
     Active Substance: SENNA LEAF\SENNOSIDES\SENNOSIDES A AND B
     Indication: CONSTIPATION
     Dosage: 30 MILLIGRAM, QD
     Route: 048
  14. TRASTUZUMAB (UNKNOWN) [Suspect]
     Active Substance: TRASTUZUMAB
     Indication: BREAST CANCER
     Dosage: 483 MG/KG
     Route: 041
     Dates: start: 20170228
  15. EPIRUBICIN [Suspect]
     Active Substance: EPIRUBICIN
     Indication: BREAST CANCER
     Dosage: 140 MILLIGRAM EVERY 3 WEEKS
     Route: 042
     Dates: start: 20180525, end: 20180615
  16. PERTUZUMAB. [Suspect]
     Active Substance: PERTUZUMAB
     Dosage: 420 MG/KG EVERY 3 WEEKS
     Route: 042
     Dates: start: 20170412
  17. AMOXIL [Concomitant]
     Active Substance: AMOXICILLIN
     Indication: LOWER RESPIRATORY TRACT INFECTION
     Dosage: 1500 MG, QD
     Route: 048
     Dates: start: 20180102, end: 20180107
  18. EPIRUBICIN [Suspect]
     Active Substance: EPIRUBICIN
     Dosage: 180 MILLIGRAM EVERY 3 WEEKS
     Route: 042
     Dates: start: 20180223, end: 20180427
  19. DOCETAXEL. [Suspect]
     Active Substance: DOCETAXEL
     Dosage: 148 MG EVERY 3 WEEKS
     Route: 042
     Dates: start: 20170412
  20. TRASTUZUMAB (UNKNOWN) [Suspect]
     Active Substance: TRASTUZUMAB
     Dosage: 514.5 MG EVERY 3 WEEKS
     Route: 041
     Dates: start: 20170412, end: 20170412
  21. LACTULOSE. [Concomitant]
     Active Substance: LACTULOSE
     Indication: CONSTIPATION
     Dosage: 15 ML, QD
     Route: 048

REACTIONS (2)
  - Systolic dysfunction [Unknown]
  - Overdose [Unknown]

NARRATIVE: CASE EVENT DATE: 20210216
